FAERS Safety Report 10219005 (Version 2)
Quarter: 2014Q2

REPORT INFORMATION
  Report Type: Spontaneous
  Country: JP (occurrence: JP)
  Receive Date: 20140605
  Receipt Date: 20140605
  Transmission Date: 20141212
  Serious: Yes (Hospitalization)
  Sender: FDA-Public Use
  Company Number: JP-NOVOPROD-407336

PATIENT
  Age: 66 Year
  Sex: Female

DRUGS (4)
  1. NOVORAPID CHU FLEXPEN [Suspect]
     Indication: TYPE 2 DIABETES MELLITUS
     Dosage: 18 U, QD
     Route: 058
     Dates: start: 2011
  2. NOVORAPID CHU FLEXPEN [Suspect]
     Dosage: LARGE QUANTITY OF INSULIN
     Route: 058
  3. NOVORAPID CHU FLEXPEN [Suspect]
     Dosage: 8 UNITS BEFORE BREAKFAST, 4 UNITS BEFORE LUNCH, 6 UNITS BEFORE DINNER
     Route: 058
  4. FLUNITRAZEPAM [Suspect]
     Indication: PRODUCT USED FOR UNKNOWN INDICATION
     Dosage: 40 TABLETS
     Route: 048

REACTIONS (3)
  - Suicidal ideation [Recovered/Resolved]
  - Intentional overdose [Recovered/Resolved]
  - Altered state of consciousness [Recovered/Resolved]
